FAERS Safety Report 16393173 (Version 1)
Quarter: 2019Q2

REPORT INFORMATION
  Report Type: Spontaneous
  Country: US (occurrence: US)
  Receive Date: 20190605
  Receipt Date: 20190605
  Transmission Date: 20190711
  Serious: Yes (Hospitalization, Other)
  Sender: FDA-Public Use
  Company Number: US-ROCHE-2328890

PATIENT
  Age: 67 Year
  Sex: Male

DRUGS (9)
  1. ACYCLOVIR [ACICLOVIR] [Concomitant]
     Active Substance: ACYCLOVIR
     Route: 065
  2. RITUXIMAB. [Suspect]
     Active Substance: RITUXIMAB
     Indication: EPSTEIN-BARR VIRAEMIA
     Route: 041
  3. CIDOFOVIR. [Concomitant]
     Active Substance: CIDOFOVIR
     Route: 061
  4. CIDOFOVIR. [Concomitant]
     Active Substance: CIDOFOVIR
     Route: 061
  5. CIDOFOVIR. [Concomitant]
     Active Substance: CIDOFOVIR
     Route: 061
  6. METHOTREXATE. [Concomitant]
     Active Substance: METHOTREXATE
  7. GANCICLOVIR. [Suspect]
     Active Substance: GANCICLOVIR
     Indication: HERPES SIMPLEX
     Route: 042
  8. CIDOFOVIR. [Concomitant]
     Active Substance: CIDOFOVIR
     Route: 061
  9. FOSCARNET [Concomitant]
     Active Substance: FOSCARNET
     Route: 065

REACTIONS (9)
  - Sepsis [Not Recovered/Not Resolved]
  - Post transplant lymphoproliferative disorder [Unknown]
  - Fungaemia [Not Recovered/Not Resolved]
  - Bacteraemia [Not Recovered/Not Resolved]
  - Herpes simplex [Not Recovered/Not Resolved]
  - Enterococcal bacteraemia [Unknown]
  - Cytomegalovirus viraemia [Unknown]
  - B-lymphocyte count decreased [Unknown]
  - Bone marrow failure [Unknown]
